FAERS Safety Report 6529898-8 (Version None)
Quarter: 2010Q1

REPORT INFORMATION
  Report Type: 
  Country: None (occurrence: None)
  Receive Date: 20100107
  Receipt Date: 20091229
  Transmission Date: 20100710
  Serious: Yes (Other)
  Sender: FDA-Public Use
  Company Number: B0548904A

PATIENT
  Sex: Female
  Weight: 53 kg

DRUGS (2)
  1. ZYBAN [Suspect]
     Indication: SMOKING CESSATION THERAPY
     Dosage: 300MG PER DAY
     Route: 048
     Dates: start: 20081106, end: 20081130
  2. FEMODENE [Concomitant]

REACTIONS (4)
  - AMNESIA [None]
  - HEADACHE [None]
  - MALAISE [None]
  - NERVOUSNESS [None]
